FAERS Safety Report 9634392 (Version 1)
Quarter: 2013Q4

REPORT INFORMATION
  Report Type: Spontaneous
  Country: AU (occurrence: None)
  Receive Date: 20131017
  Receipt Date: 20131017
  Transmission Date: 20140711
  Serious: Yes (Other)
  Sender: FDA-Public Use
  Company Number: 2013AP008841

PATIENT
  Age: 69 Year
  Sex: Female

DRUGS (3)
  1. GEMFIBROZIL [Suspect]
  2. ATORVASTATIN [Suspect]
  3. INEGY [Suspect]

REACTIONS (2)
  - Rhabdomyolysis [None]
  - Drug interaction [None]
